FAERS Safety Report 7610289-3 (Version None)
Quarter: 2011Q3

REPORT INFORMATION
  Report Type: 
  Country: None (occurrence: None)
  Receive Date: 20110706
  Receipt Date: 20110628
  Transmission Date: 20111222
  Serious: Yes (Other)
  Sender: FDA-Public Use
  Company Number: 937117

PATIENT
  Sex: Male
  Weight: 104 kg

DRUGS (3)
  1. OXALIPLATIN [Suspect]
     Indication: BILIARY TRACT DISORDER
     Dosage: 85 MG/M2 MILLIGRAM(S) SQ. METER, INTRAVENOUS DRIP
     Route: 041
     Dates: start: 20110517, end: 20110617
  2. FLUOROURACIL [Concomitant]
  3. LEUCOVORIN CALCIUM [Concomitant]

REACTIONS (2)
  - TREMOR [None]
  - CHILLS [None]
